FAERS Safety Report 16483653 (Version 1)
Quarter: 2019Q2

REPORT INFORMATION
  Report Type: Spontaneous
  Country: AT (occurrence: AT)
  Receive Date: 20190627
  Receipt Date: 20190627
  Transmission Date: 20190711
  Serious: Yes (Other)
  Sender: FDA-Public Use
  Company Number: AT-JNJFOC-20190618791

PATIENT
  Age: 37 Year
  Sex: Male

DRUGS (4)
  1. OLANZAPIN [Concomitant]
     Active Substance: OLANZAPINE
     Route: 065
  2. IXEL [Concomitant]
     Active Substance: MILNACIPRAN HYDROCHLORIDE
     Route: 065
  3. RISPERDAL [Suspect]
     Active Substance: RISPERIDONE
     Indication: PSYCHOTIC SYMPTOM
     Route: 048
  4. INVEGA SUSTENNA [Suspect]
     Active Substance: PALIPERIDONE PALMITATE
     Indication: SCHIZOPHRENIA
     Route: 030

REACTIONS (1)
  - Psychotic behaviour [Not Recovered/Not Resolved]
